FAERS Safety Report 7625920-6 (Version None)
Quarter: 2011Q3

REPORT INFORMATION
  Report Type: 
  Country: None (occurrence: None)
  Receive Date: 20110721
  Receipt Date: 20110721
  Transmission Date: 20111222
  Serious: No
  Sender: FDA-Public Use
  Company Number: None

PATIENT
  Age: 56 Year
  Sex: Female
  Weight: 68.038 kg

DRUGS (1)
  1. BONIVA [Suspect]
     Indication: OSTEOPOROSIS
     Dosage: 150MG
     Route: 048
     Dates: start: 20110519, end: 20110619

REACTIONS (7)
  - PAIN IN EXTREMITY [None]
  - PARAESTHESIA ORAL [None]
  - ARTHRALGIA [None]
  - PARAESTHESIA [None]
  - INFLUENZA LIKE ILLNESS [None]
  - HEADACHE [None]
  - BACK PAIN [None]
